FAERS Safety Report 4264020-2 (Version None)
Quarter: 2004Q1

REPORT INFORMATION
  Report Type: 
  Country: None (occurrence: None)
  Receive Date: 20040102
  Receipt Date: 20031105
  Transmission Date: 20041129
  Serious: Yes (Death, Other)
  Sender: FDA-Public Use
  Company Number: EWC031136873

PATIENT
  Age: 77 Year
  Sex: Female

DRUGS (14)
  1. XIGRIS [Suspect]
     Indication: SEPSIS
     Dosage: 37.5 MG/DAY
     Dates: start: 20031007, end: 20031010
  2. CEFUROXIME [Concomitant]
  3. NORADRENALINE [Concomitant]
  4. DOBUTAMINE HCL [Concomitant]
  5. PERFAN (ENOXIMONE) [Concomitant]
  6. HYDROCORTISONE [Concomitant]
  7. PRIMPERAN TAB [Concomitant]
  8. MAGNESIUM SULFATE [Concomitant]
  9. PANTOZOL (PANTOPRAZOLE SODIUM) [Concomitant]
  10. THYRAX (LEVOTHYROXINE) [Concomitant]
  11. FRAXIPARINE (HEPARIN-FRACTION, CALCIUM SALT) [Concomitant]
  12. SUFENTA [Concomitant]
  13. MAGISTRAAL [Concomitant]
  14. MIDAZOLAM HCL [Concomitant]

REACTIONS (2)
  - ARTERIAL THROMBOSIS [None]
  - BASILAR ARTERY OCCLUSION [None]
